FAERS Safety Report 25897402 (Version 1)
Quarter: 2025Q4

REPORT INFORMATION
  Report Type: Spontaneous
  Country: US (occurrence: None)
  Receive Date: 20251008
  Receipt Date: 20251008
  Transmission Date: 20260118
  Serious: Yes (Hospitalization)
  Sender: FDA-CTU
  Company Number: None

PATIENT
  Age: 73 Year
  Sex: Male
  Weight: 75 kg

DRUGS (2)
  1. FARXIGA [Suspect]
     Active Substance: DAPAGLIFLOZIN PROPANEDIOL
     Indication: Cardiac failure
     Dosage: FREQUENCY : DAILY;?
     Route: 048
     Dates: start: 20240601, end: 20250926
  2. FARXIGA [Suspect]
     Active Substance: DAPAGLIFLOZIN PROPANEDIOL
     Indication: Type 2 diabetes mellitus

REACTIONS (9)
  - Hypotension [None]
  - Acute kidney injury [None]
  - Escherichia urinary tract infection [None]
  - Hydronephrosis [None]
  - Pollakiuria [None]
  - Urinary incontinence [None]
  - Candida infection [None]
  - Prostatitis [None]
  - Urinary tract infection fungal [None]

NARRATIVE: CASE EVENT DATE: 20250925
